FAERS Safety Report 4494505-5 (Version None)
Quarter: 2004Q4

REPORT INFORMATION
  Report Type: 
  Country: None (occurrence: None)
  Receive Date: 20041102
  Receipt Date: 20041020
  Transmission Date: 20050328
  Serious: Yes (Hospitalization)
  Sender: FDA-Public Use
  Company Number: 2004240650FR

PATIENT
  Age: 73 Year
  Sex: Male

DRUGS (4)
  1. CAMPTOSAR [Suspect]
     Dosage: 360 MG, EVERY 2 MONTHS, IV
     Route: 042
     Dates: start: 20040722
  2. FLUOROURACIL [Suspect]
     Dosage: 5.6 MG, EVERY 2 MONTHS, IV
     Route: 042
  3. ELVORINE (CALCIUM LEVOFOLINATE) [Suspect]
     Dosage: 400 MG, EVERY 2 MONTHS, IV
     Route: 042
  4. ERBITUX(CETUXIMAB) [Suspect]
     Dosage: 500 MG, EVERY WEEK, IV
     Route: 042
     Dates: start: 20040722, end: 20040914

REACTIONS (3)
  - LOCALISED SKIN REACTION [None]
  - PAIN [None]
  - PRURITUS [None]
